FAERS Safety Report 6540333-6 (Version None)
Quarter: 2010Q1

REPORT INFORMATION
  Report Type: 
  Country: None (occurrence: None)
  Receive Date: 20100115
  Receipt Date: 20100112
  Transmission Date: 20100710
  Serious: Yes (Death)
  Sender: FDA-Public Use
  Company Number: PHHY2009BR41065

PATIENT
  Age: 66 Year
  Sex: Male

DRUGS (1)
  1. FORASEQ [Suspect]
     Indication: ASTHMA
     Dosage: TWO INHALATION (1 AT 10 AM AND 1 AT 10 PM) PER DAY

REACTIONS (1)
  - DEATH [None]
